FAERS Safety Report 4387941-9 (Version None)
Quarter: 2004Q2

REPORT INFORMATION
  Report Type: 
  Country: None (occurrence: None)
  Receive Date: 20040630
  Receipt Date: 20040623
  Transmission Date: 20050107
  Serious: Yes (Life-Threatening, Hospitalization)
  Sender: FDA-Public Use
  Company Number: US-MERCK-0406USA02227

PATIENT
  Sex: Female

DRUGS (2)
  1. [THERAPY UNSPECIFIED] [Concomitant]
     Route: 065
  2. TRUSOPT [Suspect]
     Indication: GLAUCOMA
     Route: 047

REACTIONS (2)
  - APLASTIC ANAEMIA [None]
  - INTRAOCULAR PRESSURE INCREASED [None]
